FAERS Safety Report 7977857-0 (Version None)
Quarter: 2011Q4

REPORT INFORMATION
  Report Type: 
  Country: None (occurrence: None)
  Receive Date: 20111214
  Receipt Date: 20111205
  Transmission Date: 20120403
  Serious: No
  Sender: FDA-Public Use
  Company Number: US-AMGEN-USASP2011058821

PATIENT
  Age: 22 Year
  Sex: Female
  Weight: 63.039 kg

DRUGS (11)
  1. ENBREL [Suspect]
     Indication: RHEUMATOID ARTHRITIS
     Dosage: 25 MG, 2 TIMES/WK
     Route: 058
     Dates: start: 20110517, end: 20111107
  2. NAPROXEN [Concomitant]
     Dosage: 50 MG, BID
     Route: 048
  3. OMEPRAZOLE [Concomitant]
     Dosage: 40 MG, QD
     Route: 048
  4. FOLIC ACID [Concomitant]
     Dosage: 1 MG, BID
  5. ZOLPIDEM [Concomitant]
     Dosage: 10 MG, 1/2HS
     Route: 048
  6. MTX                                /00113801/ [Concomitant]
     Dosage: 0.9 CC  QWK
     Route: 058
  7. CITALOPRAM [Concomitant]
     Dosage: 20 MG, QD
  8. ORAL CONTRACEPTIVE NOS [Concomitant]
     Dosage: UNK UNK, QD
  9. HYDROXYCHLOROQUINE [Concomitant]
     Dosage: 20 MG, QD
     Route: 048
  10. LEUCOVORIN CALCIUM [Concomitant]
     Dosage: 5 MG, 2 TIMES/WK
  11. VALTREX [Concomitant]
     Dosage: 500 MG, PRN

REACTIONS (2)
  - DRUG INEFFECTIVE [None]
  - RHEUMATOID ARTHRITIS [None]
